FAERS Safety Report 8002792 (Version 2)
Quarter: 2015Q1

REPORT INFORMATION
  Report Type: Spontaneous
  Country: JP (occurrence: JP)
  Receive Date: 20110622
  Receipt Date: 20150123
  Transmission Date: 20150721
  Serious: Yes (Hospitalization)
  Sender: FDA-Public Use
  Company Number: PHHY2011JP51945

PATIENT
  Age: 42 Year
  Sex: Male

DRUGS (2)
  1. EQUA [Suspect]
     Active Substance: VILDAGLIPTIN
     Indication: TYPE 2 DIABETES MELLITUS
     Dosage: 100 MG, QD (IN 2 DIVIDED DOSE)
     Route: 048
     Dates: start: 201101, end: 201105
  2. STARSIS [Suspect]
     Active Substance: NATEGLINIDE
     Indication: PRODUCT USED FOR UNKNOWN INDICATION
     Dosage: 270 MG, QD
     Route: 048
     Dates: start: 201101, end: 201105

REACTIONS (4)
  - Blister [Recovering/Resolving]
  - Photosensitivity reaction [Recovering/Resolving]
  - Erythema multiforme [Recovering/Resolving]
  - Rash [Recovering/Resolving]

NARRATIVE: CASE EVENT DATE: 201102
